FAERS Safety Report 6728608-9 (Version None)
Quarter: 2010Q2

REPORT INFORMATION
  Report Type: 
  Country: None (occurrence: None)
  Receive Date: 20100517
  Receipt Date: 20100506
  Transmission Date: 20101027
  Serious: Yes (Hospitalization)
  Sender: FDA-Public Use
  Company Number: US-NICOBRDEVP-2010-06289

PATIENT
  Sex: Female

DRUGS (1)
  1. GELNIQUE (WATSON LABORATORIES) [Suspect]
     Indication: INCONTINENCE
     Dosage: 100 MG, DAILY
     Route: 061
     Dates: start: 20100401, end: 20100423

REACTIONS (9)
  - BRADYCARDIA [None]
  - CONDITION AGGRAVATED [None]
  - FALL [None]
  - GENERALISED OEDEMA [None]
  - HEAD INJURY [None]
  - HEART VALVE INCOMPETENCE [None]
  - OEDEMA PERIPHERAL [None]
  - SKIN LACERATION [None]
  - SYNCOPE [None]
